FAERS Safety Report 7264930-8 (Version None)
Quarter: 2011Q1

REPORT INFORMATION
  Report Type: 
  Country: None (occurrence: None)
  Receive Date: 20110131
  Receipt Date: 20101123
  Transmission Date: 20110831
  Serious: Yes (Other)
  Sender: FDA-Public Use
  Company Number: US-BAYER-201038201NA

PATIENT
  Sex: Female
  Weight: 64.399 kg

DRUGS (12)
  1. YASMIN [Suspect]
     Indication: ACNE
     Dosage: UNK DF, UNK
     Dates: start: 20030401, end: 20050401
  2. DIAZEPAM [Concomitant]
     Dosage: 5 MG, UNK
     Route: 048
     Dates: start: 20040217
  3. ACETAMINOPHEN W/ CODEINE [Concomitant]
     Dosage: UNK
     Route: 048
     Dates: start: 20040218
  4. DIETARY SUPPLEMENTS [Concomitant]
  5. OCELLA [Suspect]
     Indication: ACNE
  6. CLINDAMYCIN HYDROCHLORIDE [Concomitant]
     Dosage: 150 MG, UNK
     Route: 048
     Dates: start: 20040225
  7. LORA TAB [Concomitant]
  8. YASMIN [Suspect]
     Indication: ORAL CONTRACEPTION
  9. IBUPROFEN [Concomitant]
     Dosage: 800 MG, UNK
     Route: 048
     Dates: start: 20020922
  10. YAZ [Suspect]
     Indication: ACNE
  11. AMOXICILLIN [Concomitant]
     Dosage: 500 MG, UNK
     Route: 048
     Dates: start: 20040220
  12. METROGEL [Concomitant]
     Dosage: 0.75 %, UNK
     Route: 067
     Dates: start: 20031210

REACTIONS (8)
  - ABDOMINAL PAIN UPPER [None]
  - NAUSEA [None]
  - DECREASED APPETITE [None]
  - VOMITING [None]
  - CHOLECYSTITIS CHRONIC [None]
  - GALLBLADDER DISORDER [None]
  - BILIARY DYSKINESIA [None]
  - TENDERNESS [None]
